FAERS Safety Report 9308373 (Version 2)
Quarter: 2013Q2

REPORT INFORMATION
  Report Type: Spontaneous
  Country: BG (occurrence: BG)
  Receive Date: 20130524
  Receipt Date: 20130603
  Transmission Date: 20140414
  Serious: Yes (Hospitalization)
  Sender: FDA-Public Use
  Company Number: BG-GLAXOSMITHKLINE-B0894122A

PATIENT
  Age: 2 Year
  Sex: Female

DRUGS (1)
  1. VENTOLIN [Suspect]
     Indication: PRODUCT USED FOR UNKNOWN INDICATION
     Route: 048

REACTIONS (3)
  - Depressed level of consciousness [Recovered/Resolved]
  - Heart rate increased [Recovered/Resolved]
  - Accidental overdose [Recovered/Resolved]
